FAERS Safety Report 7575415-3 (Version None)
Quarter: 2011Q2

REPORT INFORMATION
  Report Type: 
  Country: None (occurrence: None)
  Receive Date: 20110627
  Receipt Date: 20110617
  Transmission Date: 20111010
  Serious: Yes (Other)
  Sender: FDA-Public Use
  Company Number: US-ASTRAZENECA-2011SE37214

PATIENT
  Age: 22432 Day
  Sex: Female
  Weight: 52.2 kg

DRUGS (6)
  1. ZOLPIDEM [Concomitant]
     Indication: SLEEP DISORDER
     Route: 048
     Dates: start: 20060617
  2. MOBIC [Concomitant]
  3. FENTANYL [Concomitant]
     Indication: PAIN
     Dosage: 50 MCG/ HOUR Q3D
     Route: 061
     Dates: start: 19990617
  4. PRAVASTATIN [Concomitant]
  5. SEROQUEL [Suspect]
     Indication: DEPRESSION
     Route: 048
     Dates: start: 20030101
  6. TRAZODONE HCL [Concomitant]
     Indication: AFFECTIVE DISORDER
     Route: 048
     Dates: start: 20080617

REACTIONS (3)
  - HIP FRACTURE [None]
  - FALL [None]
  - ARTHRITIS [None]
